FAERS Safety Report 5923032-0 (Version None)
Quarter: 2008Q4

REPORT INFORMATION
  Report Type: 
  Country: None (occurrence: None)
  Receive Date: 20081018
  Receipt Date: 20081007
  Transmission Date: 20090506
  Serious: Yes (Hospitalization)
  Sender: FDA-Public Use
  Company Number: CA-PFIZER INC-2008079660

PATIENT
  Age: 49 Year
  Sex: Male
  Weight: 90 kg

DRUGS (6)
  1. SU-011,248 [Suspect]
     Indication: GLIOBLASTOMA MULTIFORME
     Route: 048
     Dates: start: 20080813, end: 20080831
  2. ATORVASTATIN CALCIUM [Suspect]
  3. AMLODIPINE [Suspect]
     Route: 048
  4. CRESTOR [Suspect]
     Route: 048
  5. TYLENOL [Suspect]
     Route: 048
  6. SLOW-K [Suspect]
     Dosage: TEXT:1 TABLET-FREQ:OD
     Route: 048

REACTIONS (6)
  - ALANINE AMINOTRANSFERASE INCREASED [None]
  - ASPARTATE AMINOTRANSFERASE INCREASED [None]
  - DYSPNOEA [None]
  - FATIGUE [None]
  - INFECTION [None]
  - SOMNOLENCE [None]
